FAERS Safety Report 21092811 (Version 1)
Quarter: 2022Q3

REPORT INFORMATION
  Report Type: Spontaneous
  Country: AG (occurrence: AG)
  Receive Date: 20220718
  Receipt Date: 20220718
  Transmission Date: 20221027
  Serious: Yes (Death, Other)
  Sender: FDA-Public Use
  Company Number: AG-009507513-2206ATG008378

PATIENT
  Age: 62 Year
  Sex: Male

DRUGS (1)
  1. KEYTRUDA [Suspect]
     Active Substance: PEMBROLIZUMAB
     Dosage: APPROXIMATELY 6 DOSES

REACTIONS (2)
  - Death [Fatal]
  - Hypokinesia [Unknown]

NARRATIVE: CASE EVENT DATE: 20220709
